FAERS Safety Report 16566997 (Version 1)
Quarter: 2019Q3

REPORT INFORMATION
  Report Type: Other
  Country: IN (occurrence: IN)
  Receive Date: 20190712
  Receipt Date: 20190712
  Transmission Date: 20191004
  Serious: Yes (Hospitalization)
  Sender: FDA-Public Use
  Company Number: IN-B. BRAUN MEDICAL INC.-2070729

PATIENT
  Age: 65 Year
  Sex: Female

DRUGS (2)
  1. CEFUROXIME FOR INJECTION USP AND DEXTROSE INJECTION USP [Suspect]
     Active Substance: CEFUROXIME SODIUM
     Indication: ANTIBIOTIC PROPHYLAXIS
     Route: 048
  2. LINEZOLID. [Concomitant]
     Active Substance: LINEZOLID
     Route: 048

REACTIONS (1)
  - Hypersensitivity vasculitis [None]
